FAERS Safety Report 8883728 (Version 2)
Quarter: 2012Q4

REPORT INFORMATION
  Report Type: 
  Country: US (occurrence: US)
  Receive Date: 20121102
  Receipt Date: 20121115
  Transmission Date: 20130627
  Serious: Yes (Other)
  Sender: FDA-Public Use
  Company Number: US-ASTRAZENECA-2012SE81940

PATIENT
  Age: 64 Year
  Sex: Male

DRUGS (1)
  1. BRILINTA [Suspect]
     Route: 048

REACTIONS (4)
  - Cerebrovascular accident [Unknown]
  - Arterial thrombosis [Unknown]
  - Myocardial infarction [Unknown]
  - Neoplasm malignant [Unknown]
